FAERS Safety Report 8825455 (Version 1)
Quarter: 2012Q4

REPORT INFORMATION
  Report Type: 
  Country: US (occurrence: US)
  Receive Date: 20121004
  Receipt Date: 20121004
  Transmission Date: 20130627
  Serious: Yes (Hospitalization)
  Sender: FDA-Public Use
  Company Number: US-ROCHE-1132406

PATIENT
  Age: 61 Year
  Sex: Female

DRUGS (13)
  1. RITUXAN [Suspect]
     Indication: PRODUCT USED FOR UNKNOWN INDICATION
     Route: 065
  2. RITUXAN [Suspect]
     Route: 065
     Dates: start: 20011102, end: 20011102
  3. RITUXAN [Suspect]
     Dosage: Very slowly 4 hour total
     Route: 065
     Dates: start: 20011102
  4. RITUXAN [Suspect]
     Route: 042
     Dates: start: 20011112
  5. INSULIN [Concomitant]
  6. DARVOCET [Concomitant]
     Route: 065
  7. ZYPREXA [Concomitant]
     Route: 065
  8. PREVACID [Concomitant]
     Route: 065
  9. PANCREASE [Concomitant]
     Route: 065
  10. MEDROL [Concomitant]
     Route: 065
  11. LEVOXYL [Concomitant]
     Dosage: 175 microgram
     Route: 065
  12. BENADRYL [Concomitant]
     Route: 042
     Dates: start: 20011112
  13. TYLENOL [Concomitant]
     Route: 065
     Dates: start: 20011112

REACTIONS (6)
  - Constipation [Unknown]
  - Cardiac failure [Unknown]
  - Dyspnoea [Unknown]
  - Dyspnoea [Recovered/Resolved]
  - Contusion [Unknown]
  - Malaise [Unknown]
